FAERS Safety Report 6678324-7 (Version None)
Quarter: 2010Q2

REPORT INFORMATION
  Report Type: 
  Country: None (occurrence: None)
  Receive Date: 20100413
  Receipt Date: 20100402
  Transmission Date: 20101027
  Serious: Yes (Other)
  Sender: FDA-Public Use
  Company Number: US-BIOGENIDEC-2010BI011064

PATIENT
  Sex: Female

DRUGS (3)
  1. TYSABRI [Suspect]
     Indication: MULTIPLE SCLEROSIS
     Route: 042
     Dates: start: 20050221, end: 20050101
  2. TYSABRI [Suspect]
     Route: 042
     Dates: start: 20070123
  3. AVONEX [Concomitant]
     Route: 030
     Dates: start: 20010501, end: 20060101

REACTIONS (5)
  - CERVIX CARCINOMA [None]
  - CRYING [None]
  - JOINT INJURY [None]
  - RESIDUAL URINE [None]
  - URINARY INCONTINENCE [None]
